FAERS Safety Report 24674650 (Version 1)
Quarter: 2024Q4

REPORT INFORMATION
  Report Type: Spontaneous
  Country: ES (occurrence: ES)
  Receive Date: 20241128
  Receipt Date: 20241128
  Transmission Date: 20250115
  Serious: Yes (Hospitalization, Other)
  Sender: AMGEN
  Company Number: ES-AMGEN-ESPSP2024230379

PATIENT

DRUGS (12)
  1. ADALIMUMAB [Suspect]
     Active Substance: ADALIMUMAB
     Indication: Crohn^s disease
     Dosage: UNK
     Route: 065
  2. FILGRASTIM [Suspect]
     Active Substance: FILGRASTIM
     Indication: Prophylaxis
     Dosage: 12 MICROGRAM/KILOGRAM, QD FOR UP TO 5 DAYS
     Route: 058
  3. METHOTREXATE [Concomitant]
     Active Substance: METHOTREXATE
     Dosage: UNK
     Route: 065
  4. INFLIXIMAB [Concomitant]
     Active Substance: INFLIXIMAB
     Dosage: UNK
     Route: 065
  5. VEDOLIZUMAB [Concomitant]
     Active Substance: VEDOLIZUMAB
     Dosage: UNK
     Route: 065
  6. USTEKINUMAB [Concomitant]
     Active Substance: USTEKINUMAB
     Dosage: UNK
     Route: 065
  7. AZATHIOPRINE [Concomitant]
     Active Substance: AZATHIOPRINE
     Dosage: UNK
     Route: 065
  8. MERCAPTOPURINE [Concomitant]
     Active Substance: MERCAPTOPURINE
     Dosage: UNK
     Route: 065
  9. PLERIXAFOR [Concomitant]
     Active Substance: PLERIXAFOR
     Dosage: 240 MILLIGRAM
     Route: 065
  10. CITRATE [Concomitant]
     Active Substance: CITRIC ACID MONOHYDRATE
     Dosage: 2.4 ML/L/MIN
     Route: 065
  11. CALCIUM [Concomitant]
     Active Substance: CALCIUM
     Dosage: INFUSION
     Route: 065
  12. MAGNESIUM [Concomitant]
     Active Substance: MAGNESIUM
     Dosage: UNK
     Route: 065

REACTIONS (37)
  - Unevaluable event [Unknown]
  - Crohn^s disease [Unknown]
  - Febrile neutropenia [Unknown]
  - Renal failure [Unknown]
  - Small intestine adenocarcinoma [Unknown]
  - Metastases to peritoneum [Unknown]
  - Intestinal stenosis [Unknown]
  - Rectal perforation [Unknown]
  - Cytomegalovirus infection reactivation [Unknown]
  - Brevibacterium infection [Unknown]
  - Stenotrophomonas infection [Unknown]
  - Gastrointestinal haemorrhage [Unknown]
  - Klebsiella infection [Unknown]
  - Septic shock [Unknown]
  - Klebsiella bacteraemia [Unknown]
  - Escherichia bacteraemia [Unknown]
  - Neutropenia [Unknown]
  - Post procedural haemorrhage [Unknown]
  - Therapy non-responder [Unknown]
  - Herpes simplex reactivation [Unknown]
  - Myalgia [Unknown]
  - Stomatitis [Unknown]
  - Gastrointestinal inflammation [Unknown]
  - Serum sickness [Unknown]
  - Ill-defined disorder [Unknown]
  - Arthralgia [Unknown]
  - Adverse event [Unknown]
  - Infection [Unknown]
  - Oral herpes [Unknown]
  - Candida infection [Unknown]
  - Haematuria [Unknown]
  - Post procedural fever [Unknown]
  - Herpes simplex [Unknown]
  - Bacterial infection [Unknown]
  - CD34 cell count decreased [Unknown]
  - Renal colic [Unknown]
  - Post procedural fistula [Unknown]
